FAERS Safety Report 21318931 (Version 2)
Quarter: 2022Q3

REPORT INFORMATION
  Report Type: Spontaneous
  Country: US (occurrence: US)
  Receive Date: 20220911
  Receipt Date: 20220924
  Transmission Date: 20221026
  Serious: No
  Sender: FDA-Public Use
  Company Number: US-SA-SAC20220829002224

PATIENT
  Age: 57 Year
  Sex: Female

DRUGS (1)
  1. DUPIXENT [Suspect]
     Active Substance: DUPILUMAB
     Indication: Nasal polyps
     Dosage: 300 MG, QOW
     Route: 058
     Dates: start: 20220217

REACTIONS (6)
  - Dizziness [Unknown]
  - Hypertension [Unknown]
  - Fatigue [Unknown]
  - Weight increased [Unknown]
  - Peripheral swelling [Unknown]
  - Blood test abnormal [Unknown]
